FAERS Safety Report 10752069 (Version 1)
Quarter: 2015Q1

REPORT INFORMATION
  Report Type: Spontaneous
  Country: JP (occurrence: None)
  Receive Date: 20150128
  Receipt Date: 20150128
  Transmission Date: 20150721
  Serious: Yes (Hospitalization)
  Sender: FDA-Public Use
  Company Number: NSR_01770_2015

PATIENT
  Age: 54 Year
  Sex: Female

DRUGS (1)
  1. HYDROXYZINE (HYDROXYZINE) [Suspect]
     Active Substance: HYDROXYZINE HYDROCHLORIDE
     Indication: RASH
     Dosage: DF

REACTIONS (2)
  - Subarachnoid haemorrhage [None]
  - Reversible cerebral vasoconstriction syndrome [None]
